FAERS Safety Report 11420299 (Version 1)
Quarter: 2015Q3

REPORT INFORMATION
  Report Type: Spontaneous
  Country: BR (occurrence: BR)
  Receive Date: 20150826
  Receipt Date: 20150826
  Transmission Date: 20151125
  Serious: Yes (Life-Threatening, Hospitalization, Other)
  Sender: FDA-Public Use
  Company Number: PHHY2015BR100097

PATIENT
  Age: 84 Year
  Sex: Female

DRUGS (1)
  1. NEOTIAPIM [Suspect]
     Active Substance: QUETIAPINE
     Indication: DEMENTIA ALZHEIMER^S TYPE
     Dosage: 75 MG, QD
     Route: 048

REACTIONS (3)
  - Apparent death [Unknown]
  - Off label use [Unknown]
  - Hallucination [Unknown]
